FAERS Safety Report 6147554-5 (Version None)
Quarter: 2009Q2

REPORT INFORMATION
  Report Type: 
  Country: None (occurrence: None)
  Receive Date: 20090406
  Receipt Date: 20090324
  Transmission Date: 20091009
  Serious: Yes (Hospitalization)
  Sender: FDA-Public Use
  Company Number: 2009-193898-NL

PATIENT
  Age: 20 Year
  Sex: Female

DRUGS (3)
  1. MIRTAZAPINE [Suspect]
     Indication: ABNORMAL BEHAVIOUR
     Dosage: DF
  2. AMISULPRIDE [Suspect]
     Indication: ABNORMAL BEHAVIOUR
     Dosage: DF
  3. OLANZAPINE [Suspect]
     Indication: ABNORMAL BEHAVIOUR
     Dosage: DF

REACTIONS (12)
  - ALDOLASE INCREASED [None]
  - BLOOD CREATINE PHOSPHOKINASE INCREASED [None]
  - BLOOD LACTATE DEHYDROGENASE INCREASED [None]
  - CONVERSION DISORDER [None]
  - CSF CELL COUNT ABNORMAL [None]
  - INTERVERTEBRAL DISC DEGENERATION [None]
  - INTERVERTEBRAL DISC PROTRUSION [None]
  - NUCLEAR MAGNETIC RESONANCE IMAGING ABNORMAL [None]
  - PLEOCYTOSIS [None]
  - SPEECH DISORDER [None]
  - SPINAL OSTEOARTHRITIS [None]
  - STIFF-MAN SYNDROME [None]
